FAERS Safety Report 13719913 (Version 2)
Quarter: 2017Q3

REPORT INFORMATION
  Report Type: Spontaneous
  Country: US (occurrence: US)
  Receive Date: 20170705
  Receipt Date: 20170803
  Transmission Date: 20171127
  Serious: Yes (Other)
  Sender: FDA-Public Use
  Company Number: US-ASTRAZENECA-2017SE68538

PATIENT
  Age: 75 Year
  Sex: Female

DRUGS (3)
  1. FASLODEX [Suspect]
     Active Substance: FULVESTRANT
     Route: 030
     Dates: start: 20170424
  2. IBRANCE [Suspect]
     Active Substance: PALBOCICLIB
     Route: 048
     Dates: start: 20170307, end: 20170530
  3. IBRANCE [Suspect]
     Active Substance: PALBOCICLIB
     Route: 048

REACTIONS (7)
  - Arthropod bite [Unknown]
  - Peripheral swelling [Unknown]
  - Infection [Unknown]
  - Malignant neoplasm progression [Unknown]
  - Dysstasia [Unknown]
  - Gait disturbance [Unknown]
  - Platelet count decreased [Unknown]
